FAERS Safety Report 20973424 (Version 1)
Quarter: 2022Q2

REPORT INFORMATION
  Report Type: Spontaneous
  Country: BR (occurrence: BR)
  Receive Date: 20220617
  Receipt Date: 20220617
  Transmission Date: 20220721
  Serious: Yes (Death, Hospitalization)
  Sender: FDA-Public Use
  Company Number: BR-CELLTRION INC.-2022BR008520

PATIENT

DRUGS (8)
  1. TRUXIMA [Suspect]
     Active Substance: RITUXIMAB-ABBS
     Indication: Non-Hodgkin^s lymphoma
     Dosage: 600 MILLIGRAM, (ROUTE OF ADMINISTRATION: ENDOVENOUS)
     Dates: start: 20220527
  2. DEXAMETHASONE [Suspect]
     Active Substance: DEXAMETHASONE
     Dosage: PRE-QT, D3 AND D4, ENDOVENOUS
     Dates: start: 20220527, end: 20220527
  3. LEVOTHYROXINE SODIUM [Concomitant]
     Active Substance: LEVOTHYROXINE SODIUM
     Indication: Hypothyroidism
  4. OXALIPLATIN [Concomitant]
     Active Substance: OXALIPLATIN
     Indication: Lymphoma
     Dosage: D1, ENDOVENOUS
     Dates: start: 20220527, end: 20220527
  5. CYTARABINE [Concomitant]
     Active Substance: CYTARABINE
     Indication: Lymphoma
     Dosage: D1 AND D2, ENDOVENOUS
     Dates: start: 20220527, end: 20220527
  6. DIPHENHYDRAMINE [Concomitant]
     Active Substance: DIPHENHYDRAMINE
     Dosage: PRE-QT, ENDOVENOUS
     Dates: start: 20220527, end: 20220527
  7. ACETAMINOPHEN [Concomitant]
     Active Substance: ACETAMINOPHEN
     Dosage: PRE-QT, ENDOVENOUS
     Dates: start: 20220527, end: 20220527
  8. GRANISETRONE [Concomitant]
     Dosage: PRE-QT, ENDOVENOUS
     Dates: start: 20220527, end: 20220527

REACTIONS (4)
  - Death [Fatal]
  - Cardiovascular disorder [Unknown]
  - General physical health deterioration [Unknown]
  - Rash [Unknown]

NARRATIVE: CASE EVENT DATE: 20220527
